FAERS Safety Report 19810052 (Version 1)
Quarter: 2021Q3

REPORT INFORMATION
  Report Type: Spontaneous
  Country: CN (occurrence: CN)
  Receive Date: 20210909
  Receipt Date: 20210909
  Transmission Date: 20211014
  Serious: Yes (Other)
  Sender: FDA-Public Use
  Company Number: ALC2021CN005077

PATIENT
  Age: 21 Year
  Sex: Female
  Weight: 47 kg

DRUGS (2)
  1. FLUORESCITE [Suspect]
     Active Substance: FLUORESCEIN SODIUM
     Indication: ANGIOGRAM RETINA
     Dosage: 5 ML, QD
     Route: 042
     Dates: start: 20210816, end: 20210816
  2. SODIUM CHLORIDE. [Concomitant]
     Active Substance: SODIUM CHLORIDE
     Indication: EMERGENCY CARE EXAMINATION
     Dosage: 10.000 ML, QD
     Route: 042
     Dates: start: 20210816, end: 20210816

REACTIONS (1)
  - Anaphylactic shock [Recovering/Resolving]

NARRATIVE: CASE EVENT DATE: 20210816
